FAERS Safety Report 20002510 (Version 1)
Quarter: 2021Q4

REPORT INFORMATION
  Report Type: Spontaneous
  Country: NL (occurrence: NL)
  Receive Date: 20211027
  Receipt Date: 20211027
  Transmission Date: 20220303
  Serious: Yes (Hospitalization)
  Sender: FDA-Public Use
  Company Number: None

PATIENT
  Age: 88 Year
  Sex: Female
  Weight: 62.5 kg

DRUGS (16)
  1. PANTOPRAZOLE SODIUM [Interacting]
     Active Substance: PANTOPRAZOLE SODIUM
     Indication: Abdominal discomfort
     Dosage: 40 MILLIGRAM DAILY; THERAPY END DATE: ASKU
     Route: 065
     Dates: start: 20170812
  2. FUROSEMIDE [Interacting]
     Active Substance: FUROSEMIDE
     Indication: Product used for unknown indication
     Dosage: 20 MILLIGRAM DAILY; FUROSEMIDE, 20 MG ORALLY 1DD, THERAPY START DATE: NASK, THERAPY END DATE: ASKU
     Route: 065
  3. PARACETAMOL/ WITTE KRUIS PARACETAMOL [Concomitant]
     Dosage: SACHET, 500 MG, THERAPY START AND END DATE: ASKU
  4. CARBOMEER/ Brand name not specified [Concomitant]
     Dosage: 2 MG/G, THERAPY START AND END DATE: ASKU, (CARBOMER 980)
  5. MACROGOL/ZOUTEN (MOVIC/MOLAX/LAXT/GEN) / MOLAXOLE [Concomitant]
     Dosage: FOR DRINK, THERAPY START AND END DATE: ASKU, POWDER FOR SUSPENSION IN SACHET
  6. CALCIUMCARB/COLECALC / Brand name not specified [Concomitant]
     Dosage: 1.25 G (GRAMS)/400 UNITS, 500MG CA, THERAPY START AND END DATE: ASKU,
  7. GLICLAZIDE/ Brand name not specified [Concomitant]
     Dosage: 30 MG, THERAPY START AND END DATE: ASKU
  8. VASELINE / Brand name not specified [Concomitant]
     Dosage: 1 GRAM PER GRAM, THERAPY START AND END DATE: ASKU
  9. DEXAMETHASON/FRAMYCETINE/GRAMICIDINE/ Brand name not specified [Concomitant]
     Dosage: 0,5/5/0,05 MG/ML (MILLIGRAM PER MILLILITER), THERAPY START AND END DATE: ASKU, 1 DF
  10. DEXTRAN 70/HYPROMELLOSE/ Brand name not specified [Concomitant]
     Dosage: 1/3 MG/ML (MILLIGRAM PER MILLILITER), THERAPY START AND END DATE: ASKU, 1 DF
  11. SALBUTAMOL / Brand name not specified [Concomitant]
     Dosage: AEROSOL, 100 MCG/DOSE, THERAPY START AND END DATE: ASKU
  12. FERROFUMARAAT/ Brand name not specified [Concomitant]
     Dosage: 200 MG, THERAPY START AND END DATE: ASKU
  13. APIXABAN/ Brand name not specified [Concomitant]
     Dosage: 5 MG, THERAPY START AND END DATE: ASKU
  14. LEVOTHYROXINE (NATRIUM) / EUTHYROX [Concomitant]
     Dosage: 88 MICROGRAM, THERAPY START AND END DATE: ASKU
  15. TRIAMCINOLONACETONIDE/ Brand name not specified [Concomitant]
     Dosage: 1 MG/G, THERAPY START AND END DATE: ASKU
  16. METOPROLOL (SUCCINAAT) / Brand name not specified [Concomitant]
     Dosage: 50 MG, THERAPY START AND END DATE: ASKU

REACTIONS (7)
  - Paraesthesia [Recovered/Resolved]
  - Muscle spasms [Recovered/Resolved]
  - Depressed level of consciousness [Recovered/Resolved]
  - Hypomagnesaemia [Recovered/Resolved]
  - Hypocalcaemia [Recovered/Resolved]
  - Agitation [Recovered/Resolved]
  - Drug interaction [Unknown]

NARRATIVE: CASE EVENT DATE: 20210906
